FAERS Safety Report 25216413 (Version 2)
Quarter: 2025Q3

REPORT INFORMATION
  Report Type: Spontaneous
  Country: EU (occurrence: EU)
  Receive Date: 20250418
  Receipt Date: 20250704
  Transmission Date: 20251020
  Serious: Yes (Death)
  Sender: ROCHE
  Company Number: EU-ROCHE-10000258453

PATIENT
  Age: 8 Year
  Sex: Male

DRUGS (1)
  1. RISDIPLAM [Suspect]
     Active Substance: RISDIPLAM
     Indication: Spinal muscular atrophy
     Route: 065
     Dates: start: 202501

REACTIONS (1)
  - Sudden death [Fatal]
